FAERS Safety Report 4530631-X (Version None)
Quarter: 2004Q4

REPORT INFORMATION
  Report Type: 
  Country: None (occurrence: None)
  Receive Date: 20041216
  Receipt Date: 20041130
  Transmission Date: 20050328
  Serious: Yes (Death)
  Sender: FDA-Public Use
  Company Number: JP_040102438

PATIENT
  Age: 75 Year
  Sex: Male

DRUGS (1)
  1. PERMAX [Suspect]
     Indication: PARKINSON'S DISEASE
     Dosage: 2250 UG DAY

REACTIONS (1)
  - PLEURAL EFFUSION [None]
